FAERS Safety Report 24175373 (Version 2)
Quarter: 2024Q3

REPORT INFORMATION
  Report Type: Spontaneous
  Country: JP (occurrence: JP)
  Receive Date: 20240805
  Receipt Date: 20240821
  Transmission Date: 20241017
  Serious: Yes (Other)
  Sender: GENMAB
  Company Number: JP-GENMAB-2024-02749

PATIENT
  Age: 75 Year
  Sex: Male

DRUGS (1)
  1. EPKINLY [Suspect]
     Active Substance: EPCORITAMAB-BYSP
     Indication: B-cell lymphoma
     Dosage: UNK
     Route: 065
     Dates: start: 20240206

REACTIONS (1)
  - Tumour pseudoprogression [Recovering/Resolving]

NARRATIVE: CASE EVENT DATE: 20240627
